FAERS Safety Report 6928072-0 (Version None)
Quarter: 2010Q3

REPORT INFORMATION
  Report Type: 
  Country: None (occurrence: None)
  Receive Date: 20100817
  Receipt Date: 20100806
  Transmission Date: 20110219
  Serious: Yes (Hospitalization, Other)
  Sender: FDA-Public Use
  Company Number: US-NAPPMUNDI-GBR-2010-0006911

PATIENT
  Age: 48 Year
  Sex: Male

DRUGS (21)
  1. MORPHINE SULFATE [Suspect]
     Dosage: 60 MG, Q2H PRN
     Route: 048
  2. MORPHINE SULFATE [Suspect]
     Dosage: 60 MG, Q2H
  3. OXYCODONE HCL [Suspect]
     Dosage: 80 MG, TID
     Route: 048
  4. OXYCODONE HCL [Suspect]
     Dosage: 100 MG, TID
     Route: 048
  5. OXYGEN [Concomitant]
     Dosage: 2 L/MIN
     Route: 055
  6. PULMOZYME [Concomitant]
     Dosage: 2.5 MG, BID
     Route: 055
  7. IPRATROPIUM BROMIDE [Concomitant]
     Route: 055
  8. ALBUTEROL SULFATE [Concomitant]
     Dosage: 2 PUFF, Q6H
     Route: 055
  9. DIAZEPAM [Concomitant]
     Dosage: 10 MG, QID
     Route: 048
  10. VITAMINS                           /90003601/ [Concomitant]
     Dosage: 1 TABLET, DAILY
     Route: 048
  11. PANCREASE MT 20 [Concomitant]
     Dosage: 4 CAPSL, EACH MEAL
     Route: 048
  12. TAMSULOSIN HYDROCHLORIDE [Concomitant]
     Dosage: 0.8 MG, DAILY
     Route: 048
  13. FINASTERIDE [Concomitant]
     Dosage: 5 MG, HS
     Route: 048
  14. METOCLOPRAMIDE [Concomitant]
     Dosage: 10 MG, DAILY
     Route: 048
  15. PANTOPRAZOLE [Concomitant]
     Dosage: 40 MG, DAILY
     Route: 048
  16. VENLAFAXINE [Concomitant]
     Dosage: 300 MG, DAILY
     Route: 048
  17. AZITHROMYCIN [Concomitant]
     Dosage: 250 MG, 3/WEEK
     Route: 048
  18. PSYLLIUM                           /01328801/ [Concomitant]
     Dosage: 6 G, DAILY
  19. METHADONE HCL [Concomitant]
     Dosage: 120 MG, TID
     Route: 048
  20. METHADONE HCL [Concomitant]
     Dosage: 150 UNK, UNK
  21. FENTANYL [Concomitant]
     Dosage: 200 UNK, UG/HR

REACTIONS (4)
  - DRUG DEPENDENCE [None]
  - DYSPNOEA [None]
  - INFECTION [None]
  - PAIN [None]
